FAERS Safety Report 26180903 (Version 1)
Quarter: 2025Q4

REPORT INFORMATION
  Report Type: Report from Study
  Country: US (occurrence: US)
  Receive Date: 20251221
  Receipt Date: 20251221
  Transmission Date: 20260117
  Serious: No
  Sender: SOLENO THERAPEUTICS
  Company Number: US-SOLENO THERAPEUTICS, INC.-SOL2025000112

PATIENT
  Age: 29 Year
  Sex: Male
  Weight: 191.42 kg

DRUGS (12)
  1. DIAZOXIDE CHOLINE [Suspect]
     Active Substance: DIAZOXIDE CHOLINE
     Indication: Prader-Willi syndrome
     Dosage: UNK UNK, QD
     Route: 048
     Dates: start: 20250507, end: 2025
  2. DIAZOXIDE CHOLINE [Suspect]
     Active Substance: DIAZOXIDE CHOLINE
     Dosage: 300 MILLIGRAM, QD
     Route: 048
     Dates: start: 2025
  3. VITAMINS [Concomitant]
     Active Substance: VITAMINS
     Indication: Vitamin supplementation
     Dosage: UNK UNK, QD
     Route: 065
  4. CALCIUM CARBONATE\CHOLECALCIFEROL [Concomitant]
     Active Substance: CALCIUM CARBONATE\CHOLECALCIFEROL
     Indication: Hypovitaminosis
     Dosage: UNK UNK, QD
     Route: 065
  5. LEVOTHYROXINE [Concomitant]
     Active Substance: LEVOTHYROXINE
     Indication: Hypothyroidism
     Dosage: UNK UNK, QD
     Route: 065
  6. METFORMIN [Concomitant]
     Active Substance: METFORMIN HYDROCHLORIDE
     Indication: Diabetes mellitus
     Dosage: UNK UNK, BID
     Route: 065
  7. LISINOPRIL [Concomitant]
     Active Substance: LISINOPRIL
     Indication: Renal impairment
     Dosage: UNK UNK, QD
     Route: 065
  8. NORDITROPIN [Concomitant]
     Active Substance: SOMATROPIN
     Indication: Growth hormone deficiency
     Dosage: UNK UNK, QD
     Route: 065
  9. INSULIN LISPRO [Concomitant]
     Active Substance: INSULIN LISPRO
     Indication: Diabetes mellitus
     Dosage: AS DIRECTED
     Route: 065
  10. LANTUS [Concomitant]
     Active Substance: INSULIN GLARGINE
     Indication: Diabetes mellitus
     Dosage: UNK UNK, QD
     Route: 065
  11. MOUNJARO [Concomitant]
     Active Substance: TIRZEPATIDE
     Indication: Weight decreased
     Dosage: UNK, ONCE WEEKLY
     Route: 065
  12. TESTOSTERONE [Concomitant]
     Active Substance: TESTOSTERONE
     Indication: Androgen deficiency
     Dosage: UNK, ONCE MONTHLY
     Route: 065

REACTIONS (3)
  - Dyspnoea [Recovering/Resolving]
  - Oedema peripheral [Recovering/Resolving]
  - Rash [Recovering/Resolving]

NARRATIVE: CASE EVENT DATE: 20250101
